FAERS Safety Report 8508442-X (Version None)
Quarter: 2012Q3

REPORT INFORMATION
  Report Type: 
  Country: None (occurrence: None)
  Receive Date: 20120713
  Receipt Date: 20120711
  Transmission Date: 20120928
  Serious: Yes (Other)
  Sender: FDA-Public Use
  Company Number: US-BAYER-2012-069446

PATIENT
  Age: 31 Year
  Sex: Female

DRUGS (1)
  1. MIRENA [Suspect]
     Indication: CONTRACEPTION
     Dosage: 20 MCG/24HR, CONT
     Route: 015
     Dates: start: 20110201, end: 20120710

REACTIONS (9)
  - ALOPECIA [None]
  - ABDOMINAL PAIN LOWER [None]
  - WEIGHT DECREASED [None]
  - DEVICE DISLOCATION [None]
  - VAGINAL ABSCESS [None]
  - PELVIC INFLAMMATORY DISEASE [None]
  - AMENORRHOEA [None]
  - OVARIAN CYST [None]
  - CHOLECYSTECTOMY [None]
